FAERS Safety Report 11324640 (Version 2)
Quarter: 2015Q3

REPORT INFORMATION
  Report Type: Spontaneous
  Country: US (occurrence: US)
  Receive Date: 20150730
  Receipt Date: 20150806
  Transmission Date: 20151125
  Serious: Yes (Other)
  Sender: FDA-Public Use
  Company Number: US-ASTRAZENECA-2013SE82011

PATIENT
  Age: 19299 Day
  Sex: Female
  Weight: 86.2 kg

DRUGS (10)
  1. BONIVA [Concomitant]
     Active Substance: IBANDRONATE SODIUM
  2. DIOVAN [Concomitant]
     Active Substance: VALSARTAN
  3. BYETTA [Suspect]
     Active Substance: EXENATIDE
     Indication: TYPE 2 DIABETES MELLITUS
     Dosage: UNK
     Route: 065
     Dates: start: 200601, end: 200904
  4. METOPROLOL [Concomitant]
     Active Substance: METOPROLOL
  5. PREMARIN [Concomitant]
     Active Substance: ESTROGENS, CONJUGATED
  6. VICTOZA [Concomitant]
     Active Substance: LIRAGLUTIDE
  7. NEXIUM [Concomitant]
     Active Substance: ESOMEPRAZOLE MAGNESIUM
  8. LANTUS [Concomitant]
     Active Substance: INSULIN GLARGINE
  9. BYETTA [Suspect]
     Active Substance: EXENATIDE
     Indication: TYPE 2 DIABETES MELLITUS
     Route: 065
     Dates: start: 20101203
  10. METFORMIN [Concomitant]
     Active Substance: METFORMIN HYDROCHLORIDE

REACTIONS (3)
  - Goitre [Unknown]
  - Thyroid adenoma [Unknown]
  - Breast mass [Unknown]

NARRATIVE: CASE EVENT DATE: 20080331
